FAERS Safety Report 5627806-5 (Version None)
Quarter: 2008Q1

REPORT INFORMATION
  Report Type: 
  Country: None (occurrence: None)
  Receive Date: 20080215
  Receipt Date: 20080214
  Transmission Date: 20080703
  Serious: Yes (Other)
  Sender: FDA-Public Use
  Company Number: D0056135A

PATIENT
  Sex: Male

DRUGS (2)
  1. ELONTRIL [Suspect]
     Dosage: 150MG PER DAY
     Route: 048
     Dates: start: 20070101
  2. THOMBRAN [Concomitant]
     Route: 065

REACTIONS (1)
  - PARKINSONISM [None]
